FAERS Safety Report 5105204-0 (Version None)
Quarter: 2006Q3

REPORT INFORMATION
  Report Type: 
  Country: None (occurrence: None)
  Receive Date: 20060911
  Receipt Date: 20060822
  Transmission Date: 20061208
  Serious: Yes (Other)
  Sender: FDA-Public Use
  Company Number: US200608004779

PATIENT
  Age: 52 Year
  Sex: Female

DRUGS (1)
  1. PROZAC [Suspect]
     Indication: DEPRESSION
     Dosage: 60 MG, DAILY (1/D), ORAL; SEE IMAGE
     Route: 048

REACTIONS (6)
  - DIABETES MELLITUS [None]
  - DRUG INEFFECTIVE [None]
  - FIBROMYALGIA [None]
  - LIVER DISORDER [None]
  - LIVER TRANSPLANT [None]
  - THYROID DISORDER [None]
